FAERS Safety Report 16414542 (Version 5)
Quarter: 2019Q3

REPORT INFORMATION
  Report Type: Spontaneous
  Country: US (occurrence: US)
  Receive Date: 20190611
  Receipt Date: 20190830
  Transmission Date: 20191004
  Serious: Yes (Hospitalization, Other)
  Sender: FDA-Public Use
  Company Number: US-PFIZER INC-2016143781

PATIENT
  Age: 77 Year
  Sex: Female

DRUGS (5)
  1. REVATIO [Suspect]
     Active Substance: SILDENAFIL CITRATE
     Dosage: 60 MG, 3X/DAY (3 TABLETS 3 TIMES A DAY)
  2. REVATIO [Suspect]
     Active Substance: SILDENAFIL CITRATE
     Indication: CREST SYNDROME
     Dosage: 180 MG, DAILY (20MG TO 9 TABLETS DAILY)
  3. REVATIO [Suspect]
     Active Substance: SILDENAFIL CITRATE
     Dosage: 180 MG, DAILY (9 TABLETS PER DAY)
  4. REVATIO [Suspect]
     Active Substance: SILDENAFIL CITRATE
     Dosage: 8 DF, DAILY
  5. REVATIO [Suspect]
     Active Substance: SILDENAFIL CITRATE
     Indication: PULMONARY HYPERTENSION
     Dosage: UNK

REACTIONS (6)
  - Hepatic infection [Unknown]
  - Gait disturbance [Unknown]
  - Off label use [Unknown]
  - Drug effective for unapproved indication [Unknown]
  - Respiration abnormal [Unknown]
  - Pulmonary thrombosis [Unknown]
